FAERS Safety Report 14766685 (Version 2)
Quarter: 2018Q4

REPORT INFORMATION
  Report Type: Spontaneous
  Country: US (occurrence: US)
  Receive Date: 20180417
  Receipt Date: 20181119
  Transmission Date: 20190204
  Serious: No
  Sender: FDA-Public Use
  Company Number: US-LUPIN PHARMACEUTICALS INC.-2017-07747

PATIENT
  Sex: Male
  Weight: 104 kg

DRUGS (1)
  1. LISINOPRIL AND HYDROCHLOROTHIAZIDE TABLETS USP 20 MG/25 MG [Suspect]
     Active Substance: HYDROCHLOROTHIAZIDE\LISINOPRIL
     Indication: PRODUCT USED FOR UNKNOWN INDICATION
     Dosage: UNK
     Route: 048

REACTIONS (3)
  - Nausea [Unknown]
  - Blood pressure inadequately controlled [Unknown]
  - Dizziness [Unknown]
